FAERS Safety Report 4583515-5 (Version None)
Quarter: 2005Q1

REPORT INFORMATION
  Report Type: 
  Country: None (occurrence: None)
  Receive Date: 20050211
  Receipt Date: 20050124
  Transmission Date: 20050727
  Serious: Yes (Death, Life-Threatening, Hospitalization)
  Sender: FDA-Public Use
  Company Number: EWC050142404

PATIENT
  Age: 31 Year
  Sex: Female

DRUGS (4)
  1. ZYPREXA [Suspect]
  2. SEROQUEL [Concomitant]
  3. ORAP [Concomitant]
  4. CLOZAPINE [Concomitant]

REACTIONS (2)
  - CARDIAC ARREST [None]
  - PULMONARY EMBOLISM [None]
